FAERS Safety Report 11383590 (Version 4)
Quarter: 2015Q3

REPORT INFORMATION
  Report Type: Report from Study
  Country: CH (occurrence: CH)
  Receive Date: 20150814
  Receipt Date: 20150924
  Transmission Date: 20151125
  Serious: Yes (Other)
  Sender: FDA-Public Use
  Company Number: CH-ABBVIE-15P-151-1441909-00

PATIENT
  Sex: Female

DRUGS (2)
  1. DUODOPA [Suspect]
     Active Substance: CARBIDOPA\LEVODOPA
     Indication: PARKINSON^S DISEASE
     Route: 050
     Dates: start: 20131115
  2. DUODOPA [Suspect]
     Active Substance: CARBIDOPA\LEVODOPA
     Dosage: 24H THERAPY,CD (DAY):3.4ML/H, CD (NIGHT): 2.2ML/H
     Route: 050
     Dates: start: 20131118

REACTIONS (6)
  - Staphylococcal infection [Unknown]
  - Hallucination [Not Recovered/Not Resolved]
  - Excessive granulation tissue [Not Recovered/Not Resolved]
  - Erythema [Unknown]
  - Stoma site discharge [Unknown]
  - Stoma site infection [Not Recovered/Not Resolved]
